FAERS Safety Report 17363471 (Version 2)
Quarter: 2020Q3

REPORT INFORMATION
  Report Type: Spontaneous
  Country: US (occurrence: US)
  Receive Date: 20200203
  Receipt Date: 20200717
  Transmission Date: 20201102
  Serious: No
  Sender: FDA-Public Use
  Company Number: US-BAUSCH-BL-2020-002778

PATIENT
  Age: 33 Year
  Sex: Female
  Weight: 93.07 kg

DRUGS (4)
  1. METFORMIN HYDROCHLORIDE. [Suspect]
     Active Substance: METFORMIN HYDROCHLORIDE
     Indication: POLYCYSTIC OVARIES
     Dosage: STARTED APPROXIMATELY 5 YEARS AGO
     Route: 048
     Dates: end: 2018
  2. GLUMETZA [Suspect]
     Active Substance: METFORMIN HYDROCHLORIDE
     Indication: PRODUCT USE IN UNAPPROVED INDICATION
     Route: 048
     Dates: start: 202001, end: 202001
  3. GLUMETZA [Suspect]
     Active Substance: METFORMIN HYDROCHLORIDE
     Indication: POLYCYSTIC OVARIES
     Route: 048
     Dates: start: 2018
  4. METFORMIN HYDROCHLORIDE. [Suspect]
     Active Substance: METFORMIN HYDROCHLORIDE
     Indication: PRODUCT USE IN UNAPPROVED INDICATION
     Route: 048
     Dates: start: 201910, end: 202001

REACTIONS (9)
  - Diarrhoea [Recovered/Resolved]
  - Drug effective for unapproved indication [Unknown]
  - Polycystic ovaries [Recovered/Resolved]
  - Symptom recurrence [Recovered/Resolved]
  - Product use in unapproved indication [Unknown]
  - Inflammation [Recovered/Resolved]
  - Dark circles under eyes [Recovered/Resolved]
  - Drug intolerance [Recovered/Resolved]
  - Nausea [Recovered/Resolved]

NARRATIVE: CASE EVENT DATE: 2019
